FAERS Safety Report 17127558 (Version 1)
Quarter: 2019Q4

REPORT INFORMATION
  Report Type: Spontaneous
  Country: DK (occurrence: DK)
  Receive Date: 20191209
  Receipt Date: 20191209
  Transmission Date: 20200122
  Serious: Yes (Other)
  Sender: FDA-Public Use
  Company Number: DK-ACCORD-165031

PATIENT
  Age: 55 Year
  Sex: Female

DRUGS (3)
  1. CLOBETASOL [Suspect]
     Active Substance: CLOBETASOL
     Indication: MULTIPLE SCLEROSIS
  2. TERIFLUNOMIDE. [Suspect]
     Active Substance: TERIFLUNOMIDE
     Indication: MULTIPLE SCLEROSIS
  3. ZINC OXIDE. [Concomitant]
     Active Substance: ZINC OXIDE
     Indication: MULTIPLE SCLEROSIS

REACTIONS (3)
  - Dermatophytosis [Recovering/Resolving]
  - Tinea infection [Recovering/Resolving]
  - Condition aggravated [Recovering/Resolving]
